FAERS Safety Report 9843173 (Version 1)
Quarter: 2013Q4

REPORT INFORMATION
  Report Type: Spontaneous
  Country: US (occurrence: None)
  Receive Date: 20131219
  Receipt Date: 20131219
  Transmission Date: 20140711
  Serious: Yes (Hospitalization)
  Sender: FDA-Public Use
  Company Number: 163-20785-13023271

PATIENT
  Age: 80 Year
  Sex: Female

DRUGS (9)
  1. THALOMID (THALIDOMIDE) (CAPSULES) [Suspect]
     Indication: PLASMA CELL MYELOMA
     Route: 048
     Dates: start: 20080207
  2. DECADRON (DEXAMETHASONE) [Concomitant]
  3. COUMADIN (WARFARIN SODIUM) [Concomitant]
  4. SIMVASTATIN (SIMVASTATIN) [Concomitant]
  5. ALEVE (NAPROXEN SODIUM) [Concomitant]
  6. DARVOCET-N 50 (PROPACET) [Concomitant]
  7. GLUCOPHAGE (METFORMIN) [Concomitant]
  8. LIPITOR (ATORVASTATIN) [Concomitant]
  9. VITAMIN B-12 (CYANOCOBALAMIN) [Concomitant]

REACTIONS (1)
  - Back pain [None]
